FAERS Safety Report 25737333 (Version 8)
Quarter: 2025Q4

REPORT INFORMATION
  Report Type: Report from Study
  Country: CL (occurrence: CL)
  Receive Date: 20250828
  Receipt Date: 20251009
  Transmission Date: 20260118
  Serious: Yes (Life-Threatening, Hospitalization, Other)
  Sender: TAKEDA
  Company Number: CL-TAKEDA-2025TUS075215

PATIENT
  Age: 13 Year
  Sex: Male

DRUGS (2)
  1. IDURSULFASE [Suspect]
     Active Substance: IDURSULFASE
     Indication: Enzyme supplementation
     Dosage: 0.5 MG/KG, 1/WEEK
  2. OXYGEN [Concomitant]
     Active Substance: OXYGEN
     Dosage: UNK

REACTIONS (21)
  - Dysphagia [Recovered/Resolved]
  - Choking [Recovered/Resolved]
  - Skin discolouration [Recovered/Resolved]
  - Laryngeal obstruction [Unknown]
  - Oxygen saturation decreased [Recovering/Resolving]
  - Pneumonia viral [Recovering/Resolving]
  - Respiratory disorder [Recovering/Resolving]
  - Somnolence [Recovering/Resolving]
  - Respiration abnormal [Recovering/Resolving]
  - Asthenia [Unknown]
  - Fatigue [Recovering/Resolving]
  - Respiratory distress [Recovering/Resolving]
  - Dyspnoea [Recovering/Resolving]
  - Hypotension [Recovering/Resolving]
  - Use of accessory respiratory muscles [Unknown]
  - Depressed mood [Unknown]
  - Sleep disorder [Unknown]
  - Constipation [Recovered/Resolved]
  - Abdominal distension [Recovered/Resolved]
  - Movement disorder [Recovered/Resolved]
  - Lung consolidation [Unknown]

NARRATIVE: CASE EVENT DATE: 20250819
